FAERS Safety Report 23844241 (Version 3)
Quarter: 2024Q2

REPORT INFORMATION
  Report Type: Spontaneous
  Country: BE (occurrence: BE)
  Receive Date: 20240510
  Receipt Date: 20240524
  Transmission Date: 20240716
  Serious: Yes (Other)
  Sender: FDA-Public Use
  Company Number: BE-MLMSERVICE-20240502-PI047696-00218-1

PATIENT
  Age: 65 Year
  Sex: Male

DRUGS (8)
  1. METHYLPREDNISOLONE [Suspect]
     Active Substance: METHYLPREDNISOLONE
     Indication: Polymyalgia rheumatica
     Dosage: 20 MG, DAILY
     Dates: start: 2021
  2. METHOTREXATE SODIUM [Suspect]
     Active Substance: METHOTREXATE SODIUM
     Indication: Polymyalgia rheumatica
     Dosage: 2.5 MG, DAILY
     Dates: start: 2021
  3. BCG VACCINE [Suspect]
     Active Substance: BCG VACCINE
     Indication: Transitional cell carcinoma
     Dosage: DOSAGE AND FREQUENCY OF BCG, STRAIN TICE, 0,4-1,6 X 107 CFU/ML IN 50 ML,, WEEKLY
     Dates: start: 202106, end: 2021
  4. TAMSULOSIN [Concomitant]
     Active Substance: TAMSULOSIN
     Dosage: 0.4 MG, DAILY
  5. ATORVASTATIN [Concomitant]
     Active Substance: ATORVASTATIN
     Dosage: 40 MG, DAILY
  6. ALLOPURINOL [Concomitant]
     Active Substance: ALLOPURINOL
     Dosage: 100 MG, DAILY
  7. TELMISARTAN [Concomitant]
     Active Substance: TELMISARTAN
     Dosage: 80 MG, DAILY
  8. ASPIRIN [Concomitant]
     Active Substance: ASPIRIN
     Dosage: 80 MG, DAILY LOW DOSE

REACTIONS (3)
  - Tuberculosis [Recovered/Resolved]
  - Epididymitis [Unknown]
  - Prostatitis [Unknown]

NARRATIVE: CASE EVENT DATE: 20210101
